FAERS Safety Report 19864394 (Version 6)
Quarter: 2021Q4

REPORT INFORMATION
  Report Type: Report from Study
  Country: US (occurrence: US)
  Receive Date: 20210921
  Receipt Date: 20211021
  Transmission Date: 20220303
  Serious: Yes (Hospitalization)
  Sender: FDA-Public Use
  Company Number: US-SA-2021SA291086

PATIENT
  Age: 29 Year
  Sex: Female
  Weight: 78.7 kg

DRUGS (57)
  1. INVESTIGATIONAL PRODUCT [Suspect]
     Active Substance: INVESTIGATIONAL PRODUCT
     Indication: Sickle cell disease
  2. PLERIXAFOR [Suspect]
     Active Substance: PLERIXAFOR
     Indication: Stem cell therapy
     Dosage: 2000 UG, QD
     Route: 058
     Dates: start: 20210825
  3. OXYCODONE [Concomitant]
     Active Substance: OXYCODONE
     Indication: Pain
     Dosage: 15 MG, PRN
     Route: 048
  4. CYMBALTA [Concomitant]
     Active Substance: DULOXETINE HYDROCHLORIDE
     Indication: Depression
     Dosage: 60 MG, QD
     Route: 048
  5. SEROQUEL [Concomitant]
     Active Substance: QUETIAPINE FUMARATE
     Indication: Depression
     Dosage: 200 MG, HS (BED TIME)
     Route: 048
  6. FOLIC ACID [Concomitant]
     Active Substance: FOLIC ACID
     Indication: Sickle cell disease
     Dosage: 1 MG, QD
     Route: 048
  7. TIZANIDINE [Concomitant]
     Active Substance: TIZANIDINE
     Indication: Muscle spasms
     Dosage: 4 MG, TID
     Route: 048
  8. MELATONIN [Concomitant]
     Active Substance: MELATONIN
     Indication: Insomnia
     Dosage: 5 MG, QD
     Route: 048
  9. LISINOPRIL [Concomitant]
     Active Substance: LISINOPRIL
     Indication: Albuminuria
     Dosage: 2.5 MG, QD
     Route: 048
     Dates: start: 20201215
  10. DICLOFENAC SODIUM [Concomitant]
     Active Substance: DICLOFENAC SODIUM
     Indication: Pain
     Dosage: 1 G, PRN
     Route: 061
     Dates: start: 20210518
  11. LIDOCAINE [Concomitant]
     Active Substance: LIDOCAINE
     Indication: Pain
     Dosage: 1 PATCH, PRN
     Route: 061
     Dates: start: 20210518
  12. LIDOCAINE [Concomitant]
     Active Substance: LIDOCAINE
     Dosage: 5 %, QD
     Route: 061
     Dates: start: 20210607
  13. LEUPROLIDE ACETATE [Concomitant]
     Active Substance: LEUPROLIDE ACETATE
     Indication: Menstrual cycle management
     Dosage: 3.75 MG, QM
     Route: 030
     Dates: start: 20210607
  14. BISACODYL [Concomitant]
     Active Substance: BISACODYL
     Indication: Constipation
     Dosage: 5 MG, PRN
     Route: 048
     Dates: start: 20210607
  15. DICLOFENAC [Concomitant]
     Active Substance: DICLOFENAC
     Indication: Pain
     Dosage: 1 G, QID
     Route: 061
     Dates: start: 20210607
  16. MAGNESIUM OXIDE [Concomitant]
     Active Substance: MAGNESIUM OXIDE
     Indication: Prophylaxis
     Dosage: 400 MG, TID
     Route: 048
     Dates: start: 20210607
  17. KETOCONAZOLE [Concomitant]
     Active Substance: KETOCONAZOLE
     Indication: Dandruff
     Dosage: 2 %, BIW
     Route: 061
     Dates: start: 20210617
  18. DESONIDE [Concomitant]
     Active Substance: DESONIDE
     Indication: Rash
     Dosage: 0.05 %, BID
     Route: 061
     Dates: start: 20210621
  19. ACETAMINOPHEN [Concomitant]
     Active Substance: ACETAMINOPHEN
     Indication: Pain
     Dosage: 325 MG, PRN
     Route: 048
     Dates: start: 20210731, end: 20210815
  20. ACETAMINOPHEN [Concomitant]
     Active Substance: ACETAMINOPHEN
     Indication: Pain
     Dosage: 650 MG, PRN
     Route: 048
     Dates: start: 20210823
  21. ACETAMINOPHEN [Concomitant]
     Active Substance: ACETAMINOPHEN
     Indication: Premedication
     Dosage: 650 MG, 1X
     Route: 048
     Dates: start: 20210824, end: 20210824
  22. DEFEROXAMINE [Concomitant]
     Active Substance: DEFEROXAMINE MESYLATE
     Indication: Iron overload
     Dosage: 2000 MG, QD
     Route: 042
     Dates: start: 20210804, end: 20210815
  23. DEFEROXAMINE [Concomitant]
     Active Substance: DEFEROXAMINE MESYLATE
     Dosage: 2000 MG, QD
     Route: 042
     Dates: start: 20210827, end: 20210904
  24. DEFEROXAMINE [Concomitant]
     Active Substance: DEFEROXAMINE MESYLATE
     Dosage: 2000 MG, QD
     Route: 042
     Dates: start: 20210915, end: 20210922
  25. DIPHENHYDRAMINE [Concomitant]
     Active Substance: DIPHENHYDRAMINE
     Indication: Pruritus
     Dosage: 25 MG, PRN
     Route: 048
     Dates: start: 20210731, end: 20210815
  26. DIPHENHYDRAMINE [Concomitant]
     Active Substance: DIPHENHYDRAMINE
     Indication: Pruritus
     Dosage: 25 MG, PRN
     Route: 048
     Dates: start: 20210823, end: 20210904
  27. DIPHENHYDRAMINE [Concomitant]
     Active Substance: DIPHENHYDRAMINE
     Dosage: 50 MG, 1X
     Route: 048
     Dates: start: 20210824, end: 20210824
  28. DIPHENHYDRAMINE [Concomitant]
     Active Substance: DIPHENHYDRAMINE
     Dosage: 25 MG, 1X
     Route: 042
     Dates: start: 20210827, end: 20210827
  29. DIPHENHYDRAMINE [Concomitant]
     Active Substance: DIPHENHYDRAMINE
     Dosage: 25 G, PRN
     Route: 048
     Dates: start: 20210915, end: 20210922
  30. GABAPENTIN [Concomitant]
     Active Substance: GABAPENTIN
     Indication: Pain
     Dosage: 1200 MG, Q8H
     Route: 048
     Dates: start: 20210805
  31. HYDROMORPHONE [Concomitant]
     Active Substance: HYDROMORPHONE
     Indication: Pain
     Dosage: 0-1.2 MG/HR, PRN
     Route: 042
     Dates: start: 20210731, end: 20210815
  32. HYDROMORPHONE [Concomitant]
     Active Substance: HYDROMORPHONE
     Indication: Pain
     Dosage: 0.6 MG
     Route: 042
     Dates: start: 20210731, end: 20210815
  33. HYDROMORPHONE [Concomitant]
     Active Substance: HYDROMORPHONE
     Dosage: 2 MG, PRN
     Route: 058
     Dates: start: 20210819, end: 20210819
  34. HYDROMORPHONE [Concomitant]
     Active Substance: HYDROMORPHONE
     Dosage: 2 MG, PRN
     Route: 058
     Dates: start: 20210822, end: 20210822
  35. HYDROMORPHONE [Concomitant]
     Active Substance: HYDROMORPHONE
     Dosage: 2 MG, PRN
     Route: 042
     Dates: start: 20210823, end: 20210824
  36. HYDROMORPHONE [Concomitant]
     Active Substance: HYDROMORPHONE
     Dosage: 1 MG, PRN
     Route: 042
     Dates: start: 20210824, end: 20210826
  37. HYDROMORPHONE [Concomitant]
     Active Substance: HYDROMORPHONE
     Dosage: 0-0.9 MG/HR, PRN
     Route: 042
     Dates: start: 20210826, end: 20210903
  38. HYDROMORPHONE [Concomitant]
     Active Substance: HYDROMORPHONE
     Dosage: UNK
     Route: 058
     Dates: start: 20210914
  39. HYDROMORPHONE [Concomitant]
     Active Substance: HYDROMORPHONE
     Dosage: 0-0.9 MG/HR PRN
     Route: 042
     Dates: start: 20210915, end: 20210922
  40. HYDROMORPHONE [Concomitant]
     Active Substance: HYDROMORPHONE
     Dosage: 2 MG, PRN
     Route: 058
     Dates: start: 20210915, end: 20210915
  41. LIDOCAINE [Concomitant]
     Active Substance: LIDOCAINE
     Indication: Pain
     Dosage: 15 MG, PRN
     Route: 048
     Dates: start: 20210731, end: 20210815
  42. LIDOCAINE [Concomitant]
     Active Substance: LIDOCAINE
     Dosage: 2 ML, PRN
     Route: 048
     Dates: start: 20210829, end: 20210904
  43. POTASSIUM CHLORIDE [Concomitant]
     Active Substance: POTASSIUM CHLORIDE
     Indication: Hypokalaemia
     Dosage: 20 MEQ, BID (EXTENDED RELEASE)
     Route: 048
     Dates: start: 20210810
  44. PETROLATUM, HYDROPHILIC [Concomitant]
     Indication: Rash
     Dosage: 1 APPLICATION, QD
     Route: 061
     Dates: start: 20210805
  45. KETOROLAC [Concomitant]
     Active Substance: KETOROLAC TROMETHAMINE
     Indication: Pain
     Dosage: 30 MG, 1X
     Route: 030
     Dates: start: 20210819, end: 20210819
  46. KETOROLAC [Concomitant]
     Active Substance: KETOROLAC TROMETHAMINE
     Indication: Pain
     Dosage: 30 MG, 1X
     Route: 030
     Dates: start: 20210822, end: 20210822
  47. KETOROLAC [Concomitant]
     Active Substance: KETOROLAC TROMETHAMINE
     Dosage: UNK
     Route: 030
     Dates: start: 20210914
  48. KETOROLAC [Concomitant]
     Active Substance: KETOROLAC TROMETHAMINE
     Dosage: 30 MG, Q8H
     Route: 042
     Dates: start: 20210915, end: 20210920
  49. KETOROLAC [Concomitant]
     Active Substance: KETOROLAC TROMETHAMINE
     Dosage: 30 MG, 1X
     Route: 030
     Dates: start: 20210915, end: 20210915
  50. ASPIRIN [Concomitant]
     Active Substance: ASPIRIN
     Indication: Premedication
     Dosage: 325 MG, QD
     Route: 048
     Dates: start: 20210825, end: 20210826
  51. CALCIUM CHLORIDE [Concomitant]
     Active Substance: CALCIUM CHLORIDE
     Indication: Apheresis
     Dosage: 2 G, Q3H
     Route: 042
     Dates: start: 20210825, end: 20210825
  52. CALCIUM CHLORIDE [Concomitant]
     Active Substance: CALCIUM CHLORIDE
     Dosage: 2 G, Q3H
     Route: 042
     Dates: start: 20210826, end: 20210826
  53. LORAZEPAM [Concomitant]
     Active Substance: LORAZEPAM
     Indication: Premedication
     Dosage: 1 MG, 1X
     Route: 048
     Dates: start: 20210824, end: 20210824
  54. MAGNESIUM SULFATE [Concomitant]
     Active Substance: MAGNESIUM SULFATE
     Indication: Apheresis
     Dosage: 3.75 G, 1X
     Route: 042
     Dates: start: 20210826, end: 20210826
  55. SENNOSIDES [Concomitant]
     Active Substance: SENNOSIDES
     Indication: Constipation
     Dosage: 2 DF, BID
     Route: 048
     Dates: start: 20210915, end: 20210922
  56. ENOXAPARIN [Concomitant]
     Active Substance: ENOXAPARIN
     Indication: Thrombosis prophylaxis
     Dosage: 40 MG, QD
     Route: 058
     Dates: start: 20210915, end: 20210922
  57. DOCUSATE [Concomitant]
     Active Substance: DOCUSATE
     Indication: Constipation
     Dosage: 100 MG, QD
     Route: 048
     Dates: start: 20210823, end: 20210826

REACTIONS (3)
  - Sickle cell anaemia with crisis [Recovered/Resolved]
  - Sickle cell anaemia with crisis [Recovered/Resolved]
  - Sickle cell anaemia with crisis [Recovered/Resolved]

NARRATIVE: CASE EVENT DATE: 20210829
